FAERS Safety Report 7629782-2 (Version None)
Quarter: 2011Q3

REPORT INFORMATION
  Report Type: 
  Country: None (occurrence: None)
  Receive Date: 20110722
  Receipt Date: 20110713
  Transmission Date: 20111222
  Serious: Yes (Other)
  Sender: FDA-Public Use
  Company Number: US-ASTRAZENECA-2011SE42111

PATIENT

DRUGS (2)
  1. PROZAC [Concomitant]
  2. SEROQUEL XR [Suspect]
     Route: 048

REACTIONS (2)
  - SMALL FOR DATES BABY [None]
  - RENAL IMPAIRMENT [None]
